FAERS Safety Report 14974142 (Version 1)
Quarter: 2018Q2

REPORT INFORMATION
  Report Type: Spontaneous
  Country: ZA (occurrence: ZA)
  Receive Date: 20180605
  Receipt Date: 20180605
  Transmission Date: 20180711
  Serious: Yes (Death)
  Sender: FDA-Public Use
  Company Number: ZA-PFIZER INC-2018227915

PATIENT
  Age: 50 Year
  Sex: Male

DRUGS (2)
  1. ASPAVOR [Suspect]
     Active Substance: ATORVASTATIN
     Dosage: 80 MG, UNK
  2. NUZAK [Suspect]
     Active Substance: FLUOXETINE HYDROCHLORIDE
     Dosage: 20 MG, UNK

REACTIONS (1)
  - Death [Fatal]
